FAERS Safety Report 7191905-X (Version None)
Quarter: 2010Q4

REPORT INFORMATION
  Report Type: 
  Country: None (occurrence: None)
  Receive Date: 20101223
  Receipt Date: 20101213
  Transmission Date: 20110411
  Serious: Yes (Hospitalization)
  Sender: FDA-Public Use
  Company Number: PHHY2010US69513

PATIENT
  Sex: Female
  Weight: 54.422 kg

DRUGS (2)
  1. NEORAL [Suspect]
     Indication: RENAL TRANSPLANT
     Dosage: 25 MG, BID
     Route: 048
  2. NEORAL [Suspect]
     Dosage: 75 MG, QD
     Route: 048
     Dates: start: 19981020

REACTIONS (2)
  - DRUG DOSE OMISSION [None]
  - KIDNEY INFECTION [None]
